FAERS Safety Report 20477212 (Version 2)
Quarter: 2022Q4

REPORT INFORMATION
  Report Type: Spontaneous
  Country: BR (occurrence: BR)
  Receive Date: 20220215
  Receipt Date: 20221018
  Transmission Date: 20230113
  Serious: Yes (Other)
  Sender: FDA-Public Use
  Company Number: BR-SA-SAC20220209001565

PATIENT

DRUGS (1)
  1. LARONIDASE [Suspect]
     Active Substance: LARONIDASE
     Indication: Mucopolysaccharidosis I
     Dosage: 6 DF, QW
     Route: 042
     Dates: start: 20190926

REACTIONS (7)
  - Dislocation of vertebra [Unknown]
  - Fall [Unknown]
  - Gait inability [Unknown]
  - Tendon disorder [Unknown]
  - Cardiac disorder [Unknown]
  - Asthma [Unknown]
  - Cough [Unknown]

NARRATIVE: CASE EVENT DATE: 20180101
